FAERS Safety Report 6142204-6 (Version None)
Quarter: 2009Q2

REPORT INFORMATION
  Report Type: 
  Country: None (occurrence: None)
  Receive Date: 20090403
  Receipt Date: 20071204
  Transmission Date: 20091009
  Serious: Yes (Death, Hospitalization, Other)
  Sender: FDA-Public Use
  Company Number: US-ASTRAZENECA-2006UW21896

PATIENT
  Age: 15965 Day
  Sex: Female
  Weight: 99.8 kg

DRUGS (18)
  1. SEROQUEL [Suspect]
     Route: 048
     Dates: start: 20010101, end: 20061220
  2. SEROQUEL [Suspect]
     Dosage: 25 MG-600 MG
     Route: 048
     Dates: start: 20010101
  3. CLOZARIL [Concomitant]
  4. GEODON [Concomitant]
  5. RISPERDAL [Concomitant]
  6. PROZAC [Concomitant]
  7. TRIHEXYPHENIDYL [Concomitant]
  8. PHENYATEK [Concomitant]
  9. PHENOBARBITAL [Concomitant]
  10. ULTRAM [Concomitant]
  11. LAMICTAL [Concomitant]
  12. ZYPREXA [Concomitant]
  13. DIAZEPAM [Concomitant]
  14. PHENCYCLIDINE [Concomitant]
  15. CITALOPRAM [Concomitant]
  16. LOPERAMIDE HCL [Concomitant]
  17. XANAX [Concomitant]
  18. AMPHETAMINE SULFATE [Concomitant]

REACTIONS (25)
  - ABDOMINAL PAIN [None]
  - ANAEMIA [None]
  - ANTIMITOCHONDRIAL ANTIBODY POSITIVE [None]
  - BACK PAIN [None]
  - BLOOD PRESSURE INCREASED [None]
  - BREAST MASS [None]
  - CONVULSION [None]
  - DEATH [None]
  - HALLUCINATION [None]
  - HEPATITIS C [None]
  - HYPOGLYCAEMIA [None]
  - MEAN CELL VOLUME INCREASED [None]
  - MENTAL STATUS CHANGES [None]
  - MUSCULOSKELETAL PAIN [None]
  - OVERDOSE [None]
  - PANCREATITIS [None]
  - PELVIC PAIN [None]
  - RHABDOMYOLYSIS [None]
  - SCHIZOAFFECTIVE DISORDER [None]
  - SCHIZOPHRENIA, UNDIFFERENTIATED TYPE [None]
  - SINUS TACHYCARDIA [None]
  - SKIN LACERATION [None]
  - SUBSTANCE ABUSE [None]
  - SUICIDAL IDEATION [None]
  - TREMOR [None]
